FAERS Safety Report 4538331-7 (Version None)
Quarter: 2004Q4

REPORT INFORMATION
  Report Type: 
  Country: None (occurrence: None)
  Receive Date: 20041223
  Receipt Date: 20040603
  Transmission Date: 20050328
  Serious: Yes (Hospitalization)
  Sender: FDA-Public Use
  Company Number: 6009088

PATIENT
  Age: 69 Year
  Sex: Male

DRUGS (4)
  1. AZATIOPRIN NM (50 MG, TABLETS) (AZATHIOPRINE) [Suspect]
     Indication: CROHN'S DISEASE
     Dosage: 150 MG ORAL
     Route: 048
     Dates: start: 20040126, end: 20040218
  2. BEHEPAN (CYANOCOBALAMIN) [Concomitant]
  3. ENTOCORT (BUDESONIDE) [Concomitant]
  4. IDEOS (COLECALCIFEROL, CALCIUM CARBONATE) [Concomitant]

REACTIONS (1)
  - PANCREATITIS [None]
